FAERS Safety Report 7872753-1 (Version None)
Quarter: 2011Q4

REPORT INFORMATION
  Report Type: 
  Country: None (occurrence: None)
  Receive Date: 20111030
  Receipt Date: 20060906
  Transmission Date: 20120403
  Serious: No
  Sender: FDA-Public Use
  Company Number: PHHY2006MX05259

PATIENT
  Sex: Female

DRUGS (1)
  1. ZELMAC [Suspect]

REACTIONS (4)
  - CONSTIPATION [None]
  - CHOLELITHIASIS [None]
  - FLATULENCE [None]
  - CARDIAC DISORDER [None]
